FAERS Safety Report 7201285-9 (Version None)
Quarter: 2010Q4

REPORT INFORMATION
  Report Type: 
  Country: None (occurrence: None)
  Receive Date: 20101227
  Receipt Date: 20101227
  Transmission Date: 20110411
  Serious: Yes (Disabling)
  Sender: FDA-Public Use
  Company Number: None

PATIENT
  Sex: Male
  Weight: 94.8018 kg

DRUGS (1)
  1. PROPOXYPHENE HYDROCHLORIDE [Suspect]
     Indication: SPINAL COLUMN STENOSIS
     Dosage: 100-650 1 TAB 3XDAY ORAL
     Route: 048
     Dates: start: 20070101, end: 20100101

REACTIONS (1)
  - ARRHYTHMIA [None]
